FAERS Safety Report 9267429 (Version 2)
Quarter: 2014Q1

REPORT INFORMATION
  Report Type: Spontaneous
  Country: US (occurrence: US)
  Receive Date: 20130502
  Receipt Date: 20140325
  Transmission Date: 20141002
  Serious: Yes (Disabling)
  Sender: FDA-Public Use
  Company Number: US-009507513-1304USA016974

PATIENT
  Sex: Male

DRUGS (6)
  1. PROPECIA [Suspect]
     Indication: ALOPECIA
     Dosage: 1 MG, UNK
     Route: 048
     Dates: start: 200005, end: 200312
  2. NADOLOL [Concomitant]
     Indication: HYPERTENSION
     Dosage: UNK
     Dates: start: 1996, end: 2003
  3. HYDROCODONE [Concomitant]
     Dosage: UNK
     Dates: start: 2000
  4. CODEINE [Concomitant]
     Dosage: UNK
     Dates: start: 2000
  5. MORPHINE [Concomitant]
     Dosage: UNK
     Dates: start: 2000
  6. HYDROMORPHONE [Concomitant]
     Dosage: UNK
     Dates: start: 2000

REACTIONS (16)
  - Hernia [Unknown]
  - Hypogonadism [Unknown]
  - Blood testosterone decreased [Unknown]
  - Prostatomegaly [Unknown]
  - Lethargy [Unknown]
  - Migraine [Unknown]
  - Joint instability [Unknown]
  - Exostosis [Unknown]
  - Impaired gastric emptying [Unknown]
  - Nephrolithiasis [Unknown]
  - Azoospermia [Not Recovered/Not Resolved]
  - Fatigue [Unknown]
  - Infertility [Unknown]
  - Erectile dysfunction [Not Recovered/Not Resolved]
  - Sexual dysfunction [Not Recovered/Not Resolved]
  - Libido decreased [Unknown]
